FAERS Safety Report 25715861 (Version 1)
Quarter: 2025Q3

REPORT INFORMATION
  Report Type: Report from Study
  Country: EU (occurrence: EU)
  Receive Date: 20250822
  Receipt Date: 20250822
  Transmission Date: 20251021
  Serious: Yes (Hospitalization, Other)
  Sender: MYLAN
  Company Number: EU-JNJFOC-20250739152

PATIENT
  Age: 8 Decade
  Sex: Female
  Weight: 50 kg

DRUGS (52)
  1. REVATIO [Suspect]
     Active Substance: SILDENAFIL CITRATE
     Indication: Pulmonary arterial hypertension
  2. REVATIO [Suspect]
     Active Substance: SILDENAFIL CITRATE
     Route: 048
  3. REVATIO [Suspect]
     Active Substance: SILDENAFIL CITRATE
     Route: 048
  4. REVATIO [Suspect]
     Active Substance: SILDENAFIL CITRATE
  5. FUROSEMIDE [Suspect]
     Active Substance: FUROSEMIDE
     Indication: Cardiac failure
     Dates: start: 20250423, end: 20250625
  6. FUROSEMIDE [Suspect]
     Active Substance: FUROSEMIDE
     Route: 048
     Dates: start: 20250423, end: 20250625
  7. FUROSEMIDE [Suspect]
     Active Substance: FUROSEMIDE
     Route: 048
     Dates: start: 20250423, end: 20250625
  8. FUROSEMIDE [Suspect]
     Active Substance: FUROSEMIDE
     Dates: start: 20250423, end: 20250625
  9. OPSUMIT [Suspect]
     Active Substance: MACITENTAN
     Indication: Pulmonary arterial hypertension
  10. OPSUMIT [Suspect]
     Active Substance: MACITENTAN
     Route: 048
  11. OPSUMIT [Suspect]
     Active Substance: MACITENTAN
     Route: 048
  12. OPSUMIT [Suspect]
     Active Substance: MACITENTAN
  13. SPIRONOLACTONE [Suspect]
     Active Substance: SPIRONOLACTONE
     Indication: Cardiac failure
     Dates: start: 20250423, end: 20250625
  14. SPIRONOLACTONE [Suspect]
     Active Substance: SPIRONOLACTONE
     Route: 048
     Dates: start: 20250423, end: 20250625
  15. SPIRONOLACTONE [Suspect]
     Active Substance: SPIRONOLACTONE
     Route: 048
     Dates: start: 20250423, end: 20250625
  16. SPIRONOLACTONE [Suspect]
     Active Substance: SPIRONOLACTONE
     Dates: start: 20250423, end: 20250625
  17. VITAMIN D [Concomitant]
     Active Substance: VITAMIN D NOS
     Indication: Osteoporosis
  18. VITAMIN D [Concomitant]
     Active Substance: VITAMIN D NOS
     Route: 048
  19. VITAMIN D [Concomitant]
     Active Substance: VITAMIN D NOS
     Route: 048
  20. VITAMIN D [Concomitant]
     Active Substance: VITAMIN D NOS
  21. EMPAGLIFLOZIN [Concomitant]
     Active Substance: EMPAGLIFLOZIN
     Indication: Cardiac failure chronic
     Dates: start: 20240209, end: 20250523
  22. EMPAGLIFLOZIN [Concomitant]
     Active Substance: EMPAGLIFLOZIN
     Route: 048
     Dates: start: 20240209, end: 20250523
  23. EMPAGLIFLOZIN [Concomitant]
     Active Substance: EMPAGLIFLOZIN
     Route: 048
     Dates: start: 20240209, end: 20250523
  24. EMPAGLIFLOZIN [Concomitant]
     Active Substance: EMPAGLIFLOZIN
     Dates: start: 20240209, end: 20250523
  25. LISINOPRIL [Concomitant]
     Active Substance: LISINOPRIL
     Indication: Hypertension
  26. LISINOPRIL [Concomitant]
     Active Substance: LISINOPRIL
     Route: 065
  27. LISINOPRIL [Concomitant]
     Active Substance: LISINOPRIL
     Route: 065
  28. LISINOPRIL [Concomitant]
     Active Substance: LISINOPRIL
  29. ERYTHROPOIETIN [Concomitant]
     Active Substance: ERYTHROPOIETIN
     Indication: Anaemia
  30. ERYTHROPOIETIN [Concomitant]
     Active Substance: ERYTHROPOIETIN
     Route: 058
  31. ERYTHROPOIETIN [Concomitant]
     Active Substance: ERYTHROPOIETIN
     Route: 058
  32. ERYTHROPOIETIN [Concomitant]
     Active Substance: ERYTHROPOIETIN
  33. COLCHICINE [Concomitant]
     Active Substance: COLCHICINE
     Indication: Pleural effusion
  34. COLCHICINE [Concomitant]
     Active Substance: COLCHICINE
     Indication: Pericardial effusion
     Route: 048
  35. COLCHICINE [Concomitant]
     Active Substance: COLCHICINE
     Route: 048
  36. COLCHICINE [Concomitant]
     Active Substance: COLCHICINE
  37. APIXABAN [Concomitant]
     Active Substance: APIXABAN
     Indication: Atrial fibrillation
  38. APIXABAN [Concomitant]
     Active Substance: APIXABAN
     Route: 048
  39. APIXABAN [Concomitant]
     Active Substance: APIXABAN
     Route: 048
  40. APIXABAN [Concomitant]
     Active Substance: APIXABAN
  41. FOLIC ACID [Concomitant]
     Active Substance: FOLIC ACID
     Indication: Anaemia
  42. FOLIC ACID [Concomitant]
     Active Substance: FOLIC ACID
     Route: 048
  43. FOLIC ACID [Concomitant]
     Active Substance: FOLIC ACID
     Route: 048
  44. FOLIC ACID [Concomitant]
     Active Substance: FOLIC ACID
  45. PANTOPRAZOLE [Concomitant]
     Active Substance: PANTOPRAZOLE
     Indication: Dyspepsia
  46. PANTOPRAZOLE [Concomitant]
     Active Substance: PANTOPRAZOLE
     Route: 048
  47. PANTOPRAZOLE [Concomitant]
     Active Substance: PANTOPRAZOLE
     Route: 048
  48. PANTOPRAZOLE [Concomitant]
     Active Substance: PANTOPRAZOLE
  49. BECLOMETHASONE DIPROPIONATE\FORMOTEROL FUMARATE\GLYCOPYRROLATE [Concomitant]
     Active Substance: BECLOMETHASONE DIPROPIONATE\FORMOTEROL FUMARATE\GLYCOPYRROLATE
     Indication: Chronic obstructive pulmonary disease
  50. BECLOMETHASONE DIPROPIONATE\FORMOTEROL FUMARATE\GLYCOPYRROLATE [Concomitant]
     Active Substance: BECLOMETHASONE DIPROPIONATE\FORMOTEROL FUMARATE\GLYCOPYRROLATE
     Route: 055
  51. BECLOMETHASONE DIPROPIONATE\FORMOTEROL FUMARATE\GLYCOPYRROLATE [Concomitant]
     Active Substance: BECLOMETHASONE DIPROPIONATE\FORMOTEROL FUMARATE\GLYCOPYRROLATE
     Route: 055
  52. BECLOMETHASONE DIPROPIONATE\FORMOTEROL FUMARATE\GLYCOPYRROLATE [Concomitant]
     Active Substance: BECLOMETHASONE DIPROPIONATE\FORMOTEROL FUMARATE\GLYCOPYRROLATE

REACTIONS (6)
  - Gastrostomy [Recovered/Resolved with Sequelae]
  - Hypercalcaemia [Recovered/Resolved with Sequelae]
  - Urinary tract infection [Recovered/Resolved with Sequelae]
  - Depression [Recovered/Resolved with Sequelae]
  - Acute kidney injury [Recovered/Resolved with Sequelae]
  - Cachexia [Unknown]

NARRATIVE: CASE EVENT DATE: 20250625
